FAERS Safety Report 15553445 (Version 2)
Quarter: 2018Q4

REPORT INFORMATION
  Report Type: Spontaneous
  Country: BE (occurrence: BE)
  Receive Date: 20181026
  Receipt Date: 20181126
  Transmission Date: 20190205
  Serious: Yes (Hospitalization, Other)
  Sender: FDA-Public Use
  Company Number: BE-BRISTOL-MYERS SQUIBB COMPANY-BMS-2018-096518

PATIENT
  Age: 71 Year
  Sex: Female

DRUGS (2)
  1. WARFARIN SODIUM. [Suspect]
     Active Substance: WARFARIN SODIUM
     Indication: ATRIAL FIBRILLATION
     Dosage: 3.75 MG/1 DAY
     Route: 065
  2. FLUCONAZOLE. [Interacting]
     Active Substance: FLUCONAZOLE
     Indication: ORAL CANDIDIASIS
     Dosage: 200 MG/ 1 DAY
     Route: 065

REACTIONS (5)
  - Oral mucosa haematoma [Recovered/Resolved]
  - Labelled drug-drug interaction medication error [Recovered/Resolved]
  - Overdose [Recovered/Resolved]
  - Pharyngeal stenosis [Unknown]
  - Pharyngeal haematoma [Recovered/Resolved]
